FAERS Safety Report 23265767 (Version 1)
Quarter: 2023Q4

REPORT INFORMATION
  Report Type: Spontaneous
  Country: US (occurrence: US)
  Receive Date: 20231206
  Receipt Date: 20231206
  Transmission Date: 20240110
  Serious: Yes (Other)
  Sender: FDA-Public Use
  Company Number: US-CELLTRION INC.-2023US022192

PATIENT

DRUGS (1)
  1. RITUXIMAB [Suspect]
     Active Substance: RITUXIMAB
     Indication: Mantle cell lymphoma
     Dosage: EVERY 2 MONTHS SINCE 2019
     Dates: start: 2019

REACTIONS (2)
  - Disseminated strongyloidiasis [Unknown]
  - Intentional product use issue [Unknown]
